FAERS Safety Report 6699785-3 (Version None)
Quarter: 2010Q2

REPORT INFORMATION
  Report Type: 
  Country: None (occurrence: None)
  Receive Date: 20100427
  Receipt Date: 20100427
  Transmission Date: 20101027
  Serious: Yes (Hospitalization)
  Sender: FDA-Public Use
  Company Number: None

PATIENT
  Age: 55 Year
  Sex: Male
  Weight: 99.7913 kg

DRUGS (1)
  1. CLARITIN [Suspect]
     Indication: MULTIPLE ALLERGIES
     Dosage: LORATADINE TABLETS 10 MG DAILY PO
     Route: 048
     Dates: start: 20080101, end: 20100301

REACTIONS (2)
  - EPISTAXIS [None]
  - PRODUCT SUBSTITUTION ISSUE [None]
